FAERS Safety Report 11782337 (Version 1)
Quarter: 2015Q4

REPORT INFORMATION
  Report Type: Spontaneous
  Country: US (occurrence: US)
  Receive Date: 20151127
  Receipt Date: 20151127
  Transmission Date: 20160305
  Serious: No
  Sender: FDA-Public Use
  Company Number: US-LUPIN PHARMACEUTICALS INC.-E2B_00003840

PATIENT
  Sex: Male

DRUGS (1)
  1. CEFDINIR FOR ORAL SUSPENSION USP 250 MG /5 ML [Suspect]
     Active Substance: CEFDINIR
     Indication: PRODUCT USED FOR UNKNOWN INDICATION
     Dosage: 150 MG
     Route: 065
     Dates: start: 20150423

REACTIONS (1)
  - Faeces discoloured [Unknown]
